FAERS Safety Report 7594116-9 (Version None)
Quarter: 2011Q3

REPORT INFORMATION
  Report Type: 
  Country: None (occurrence: None)
  Receive Date: 20110706
  Receipt Date: 20110701
  Transmission Date: 20111222
  Serious: Yes (Hospitalization, Other)
  Sender: FDA-Public Use
  Company Number: IT-ABBOTT-11P-083-0733978-00

PATIENT
  Sex: Female

DRUGS (2)
  1. CLARITHROMYCIN [Suspect]
     Indication: TONSILLITIS
     Route: 048
     Dates: start: 20110614, end: 20110616
  2. ACETAMINOPHEN [Concomitant]
     Indication: PYREXIA

REACTIONS (6)
  - URTICARIA [None]
  - INFECTIOUS MONONUCLEOSIS [None]
  - FACE OEDEMA [None]
  - RASH MORBILLIFORM [None]
  - SYNCOPE [None]
  - PRURITUS GENERALISED [None]
